FAERS Safety Report 12820954 (Version 1)
Quarter: 2016Q4

REPORT INFORMATION
  Report Type: Report from Study
  Country: SC (occurrence: SC)
  Receive Date: 20161006
  Receipt Date: 20161006
  Transmission Date: 20170207
  Serious: Yes (Death)
  Sender: FDA-Public Use
  Company Number: PHHY2016SC136026

PATIENT
  Sex: Male

DRUGS (1)
  1. GLIVEC [Suspect]
     Active Substance: IMATINIB MESYLATE
     Indication: ACUTE LYMPHOCYTIC LEUKAEMIA
     Dosage: 300 MG, UNK
     Route: 065

REACTIONS (5)
  - Brain oedema [Fatal]
  - Central nervous system leukaemia [Fatal]
  - Acute lymphocytic leukaemia recurrent [Fatal]
  - Neutropenia [Fatal]
  - Intracranial pressure increased [Fatal]
